FAERS Safety Report 9927435 (Version 3)
Quarter: 2014Q1

REPORT INFORMATION
  Report Type: Spontaneous
  Country: NO (occurrence: NO)
  Receive Date: 20140227
  Receipt Date: 20140314
  Transmission Date: 20141002
  Serious: Yes (Hospitalization, Disabling, Other)
  Sender: FDA-Public Use
  Company Number: NO-MERCK-1402NOR002436

PATIENT
  Age: 46 Year
  Sex: Male
  Weight: 60 kg

DRUGS (3)
  1. AERIUS [Suspect]
     Indication: HYPERSENSITIVITY
     Dosage: 5 MG, QD
     Route: 048
     Dates: start: 20130309, end: 20140113
  2. AERIUS [Suspect]
     Dosage: UNK
  3. LYRICA [Concomitant]
     Indication: ANXIETY
     Dosage: UNK
     Route: 048
     Dates: start: 20110610

REACTIONS (2)
  - Carbohydrate deficient transferrin increased [Recovered/Resolved with Sequelae]
  - Hepatic enzyme abnormal [Recovered/Resolved with Sequelae]
